FAERS Safety Report 17035759 (Version 1)
Quarter: 2019Q4

REPORT INFORMATION
  Report Type: Spontaneous
  Country: IE (occurrence: IE)
  Receive Date: 20191115
  Receipt Date: 20191115
  Transmission Date: 20200122
  Serious: Yes (Other)
  Sender: FDA-Public Use
  Company Number: IE-MANKINDUS-000001

PATIENT
  Age: 31 Year
  Sex: Male

DRUGS (1)
  1. CLOMIPRAMINE [Suspect]
     Active Substance: CLOMIPRAMINE
     Indication: CATAPLEXY

REACTIONS (5)
  - Narcolepsy [Recovered/Resolved]
  - Withdrawal syndrome [Recovered/Resolved]
  - Urinary hesitation [Unknown]
  - Ejaculation disorder [Unknown]
  - Cataplexy [Recovered/Resolved]
